FAERS Safety Report 24351193 (Version 1)
Quarter: 2024Q3

REPORT INFORMATION
  Report Type: Report from Study
  Country: AT (occurrence: AT)
  Receive Date: 20240923
  Receipt Date: 20240923
  Transmission Date: 20241016
  Serious: No
  Sender: ROCHE
  Company Number: AT-ROCHE-2827710

PATIENT
  Age: 47 Year
  Sex: Female
  Weight: 58.0 kg

DRUGS (48)
  1. HERCEPTIN [Suspect]
     Active Substance: TRASTUZUMAB
     Indication: HER2 positive breast cancer
     Route: 042
     Dates: start: 20190724, end: 20190912
  2. XELODA [Suspect]
     Active Substance: CAPECITABINE
     Indication: HER2 positive breast cancer
     Dosage: FREQUENCY: OTHER MOST RECENT DOSE PRIOR TO THE EVENT: 23/SEP/2020?SIX TIMES A DAY FOR 14 DAYS, 7 DAY
     Route: 048
     Dates: start: 20200923, end: 20201220
  3. XELODA [Suspect]
     Active Substance: CAPECITABINE
     Route: 048
     Dates: start: 20230102, end: 20230115
  4. XELODA [Suspect]
     Active Substance: CAPECITABINE
     Route: 048
     Dates: start: 20210109, end: 20210215
  5. XELODA [Suspect]
     Active Substance: CAPECITABINE
     Dosage: TWICE DAILY FOR 2 WEEKS; THEN ONE WEEK BREAK
     Route: 048
     Dates: start: 20230420, end: 20230510
  6. XELODA [Suspect]
     Active Substance: CAPECITABINE
     Dosage: TWICE DAILY FOR 2 WEEKS; THEN 1 WEEK BREAK
     Route: 048
     Dates: start: 20230511, end: 20230601
  7. XELODA [Suspect]
     Active Substance: CAPECITABINE
     Dosage: SIX TIMES A DAY FOR 14 DAYS, 7 DAYS BREAK
     Route: 048
     Dates: start: 20210322, end: 20211209
  8. XELODA [Suspect]
     Active Substance: CAPECITABINE
     Dosage: TWICE DAILY FOR 2 WEEKS; THEN 1 WEEK BREAK
     Route: 048
     Dates: start: 20230602, end: 20230622
  9. PERJETA [Suspect]
     Active Substance: PERTUZUMAB
     Indication: HER2 positive breast cancer
     Route: 042
     Dates: start: 20190724, end: 20190912
  10. KADCYLA [Suspect]
     Active Substance: ADO-TRASTUZUMAB EMTANSINE
     Indication: HER2 positive breast cancer
     Dosage: FREQUENCY: Q3W - EVERY 3 WEEKS MOST RECENT DOSE PRIOR TO THE EVENT: 03/JUL/2020
     Route: 042
     Dates: start: 20191014, end: 20200518
  11. KADCYLA [Suspect]
     Active Substance: ADO-TRASTUZUMAB EMTANSINE
     Route: 042
     Dates: start: 20200703, end: 20200703
  12. TAXOL [Suspect]
     Active Substance: PACLITAXEL
     Indication: HER2 positive breast cancer
     Route: 042
     Dates: start: 20190724, end: 20190912
  13. TYKERB [Suspect]
     Active Substance: LAPATINIB DITOSYLATE
     Indication: HER2 positive breast cancer
     Dosage: FREQUENCY: OTHER MOST RECENT DOSE PRIOR TO THE EVENT: 23/SEP/2020
     Route: 048
     Dates: start: 20200923, end: 20201228
  14. TYKERB [Suspect]
     Active Substance: LAPATINIB DITOSYLATE
     Route: 048
     Dates: start: 20210109, end: 20210215
  15. TYKERB [Suspect]
     Active Substance: LAPATINIB DITOSYLATE
     Route: 048
     Dates: start: 20210322, end: 20211216
  16. ACETAMINOPHEN [Concomitant]
     Active Substance: ACETAMINOPHEN
     Dosage: ONGOING = CHECKED
     Dates: start: 20190701
  17. PANTOPRAZOLE SODIUM [Concomitant]
     Active Substance: PANTOPRAZOLE SODIUM
     Dates: start: 20190701
  18. SUCRALAN [Concomitant]
     Dates: start: 20190701
  19. ZOFRAN [Concomitant]
     Active Substance: ONDANSETRON HYDROCHLORIDE
     Dates: start: 20190701
  20. ZOFRAN [Concomitant]
     Active Substance: ONDANSETRON HYDROCHLORIDE
     Dosage: ONGOING = CHECKED
     Dates: start: 20190704
  21. POLYETHYLENE GLYCOL 4000 [Concomitant]
     Active Substance: POLYETHYLENE GLYCOL 4000
     Dates: start: 20190705
  22. ALPRAZOLAM [Concomitant]
     Active Substance: ALPRAZOLAM
     Dates: start: 20190715
  23. CITALOPRAM [Concomitant]
     Active Substance: CITALOPRAM\CITALOPRAM HYDROBROMIDE
     Dates: start: 20190715
  24. DRONABINOL [Concomitant]
     Active Substance: DRONABINOL
     Dates: start: 20190716
  25. HYDROMORPHONE HYDROCHLORIDE [Concomitant]
     Active Substance: HYDROMORPHONE HYDROCHLORIDE
     Dosage: ONGOING = CHECKED
     Dates: start: 20190716
  26. ASCORBIC ACID\CALCIUM PHOSPHATE\CHOLECALCIFEROL\CITRIC ACID MONOHYDRAT [Concomitant]
     Active Substance: ASCORBIC ACID\CALCIUM PHOSPHATE\CHOLECALCIFEROL\CITRIC ACID MONOHYDRATE
     Dates: start: 20190717
  27. CEOLAT [Concomitant]
     Dosage: ONGOING = CHECKED
     Dates: start: 20190815
  28. EUTHYROX [Concomitant]
     Active Substance: LEVOTHYROXINE SODIUM
     Dates: start: 20190703
  29. HYDROMORPHONE HYDROCHLORIDE [Concomitant]
     Active Substance: HYDROMORPHONE HYDROCHLORIDE
     Dosage: ONGOING = CHECKED
     Dates: start: 20190716
  30. TRAZODONE HYDROCHLORIDE [Concomitant]
     Active Substance: TRAZODONE HYDROCHLORIDE
     Dates: start: 20190716
  31. OLANZAPINE [Concomitant]
     Active Substance: OLANZAPINE
     Dates: start: 20190904
  32. DEXAMETHASONE [Concomitant]
     Active Substance: DEXAMETHASONE
     Dates: start: 20190704
  33. NEURONTIN [Concomitant]
     Active Substance: GABAPENTIN
  34. VALACYCLOVIR HYDROCHLORIDE [Concomitant]
     Active Substance: VALACYCLOVIR HYDROCHLORIDE
  35. AUGMENTIN [Concomitant]
     Active Substance: AMOXICILLIN\CLAVULANATE POTASSIUM
  36. ACETAMINOPHEN [Concomitant]
     Active Substance: ACETAMINOPHEN
  37. LOVENOX [Concomitant]
     Active Substance: ENOXAPARIN SODIUM
  38. FERRETAB [FERROUS FUMARATE] [Concomitant]
  39. LOPERAMIDE HYDROCHLORIDE [Concomitant]
     Active Substance: LOPERAMIDE HYDROCHLORIDE
  40. LENDORM [Concomitant]
     Active Substance: BROTIZOLAM
  41. URSODIOL [Concomitant]
     Active Substance: URSODIOL
  42. ORNITHINE ASPARTATE [Concomitant]
     Active Substance: ORNITHINE ASPARTATE
  43. NEULASTA [Concomitant]
     Active Substance: PEGFILGRASTIM
  44. EMEND [Concomitant]
     Active Substance: APREPITANT
  45. SULTAMICILLIN [Concomitant]
     Active Substance: SULTAMICILLIN
  46. LEVOTHYROXINE SODIUM [Concomitant]
     Active Substance: LEVOTHYROXINE SODIUM
  47. LACTULOSE [Concomitant]
     Active Substance: LACTULOSE
  48. XGEVA [Concomitant]
     Active Substance: DENOSUMAB

REACTIONS (4)
  - Asthenia [Recovered/Resolved]
  - General physical health deterioration [Recovered/Resolved]
  - Blood bilirubin increased [Recovered/Resolved]
  - Aphthous ulcer [Recovered/Resolved]

NARRATIVE: CASE EVENT DATE: 20201228
